FAERS Safety Report 9409567 (Version 2)
Quarter: 2013Q3

REPORT INFORMATION
  Report Type: Spontaneous
  Country: US (occurrence: US)
  Receive Date: 20130719
  Receipt Date: 20130801
  Transmission Date: 20140515
  Serious: Yes (Other)
  Sender: FDA-Public Use
  Company Number: US-JNJFOC-20130709938

PATIENT
  Sex: 0

DRUGS (6)
  1. DOXORUBICIN [Suspect]
     Indication: PERIPHERAL T-CELL LYMPHOMA UNSPECIFIED
     Dosage: ON DAY 1
     Route: 042
  2. CYCLOPHOSPHAMIDE [Suspect]
     Indication: PERIPHERAL T-CELL LYMPHOMA UNSPECIFIED
     Dosage: ON DAY 1
     Route: 065
  3. VINCRISTINE [Suspect]
     Indication: PERIPHERAL T-CELL LYMPHOMA UNSPECIFIED
     Dosage: 1.4 MG/M2 WITH A MAXIMUM DOSE OF 2MG ON DAY 1
     Route: 065
  4. PREDNISONE [Suspect]
     Indication: PERIPHERAL T-CELL LYMPHOMA UNSPECIFIED
     Dosage: ON DAYS 1-5
     Route: 065
  5. VORINOSTAT [Suspect]
     Indication: PERIPHERAL T-CELL LYMPHOMA UNSPECIFIED
     Dosage: 4000 MG OVER 10D PER CYCLE
     Route: 048
  6. VORINOSTAT [Suspect]
     Indication: PERIPHERAL T-CELL LYMPHOMA UNSPECIFIED
     Dosage: 3000 MG OVER 10D PER CYCLE
     Route: 048

REACTIONS (19)
  - Angioimmunoblastic T-cell lymphoma recurrent [Unknown]
  - Neutropenia [Unknown]
  - Pain [Unknown]
  - Peripheral sensory neuropathy [Unknown]
  - Thrombocytopenia [Unknown]
  - Thrombosis [Unknown]
  - Decreased appetite [Unknown]
  - Dizziness [Unknown]
  - Stomatitis [Unknown]
  - Fatigue [Unknown]
  - Infection [Unknown]
  - Diarrhoea [Unknown]
  - Oedema [Unknown]
  - Nausea [Unknown]
  - Vomiting [Unknown]
  - Constipation [Unknown]
  - Cough [Unknown]
  - Dyspnoea [Unknown]
  - Anaemia [Unknown]
